FAERS Safety Report 6081071-6 (Version None)
Quarter: 2009Q1

REPORT INFORMATION
  Report Type: 
  Country: None (occurrence: None)
  Receive Date: 20090114
  Receipt Date: 20080609
  Transmission Date: 20090719
  Serious: Yes (Hospitalization)
  Sender: FDA-Public Use
  Company Number: 273037

PATIENT
  Age: 69 Year
  Sex: Female

DRUGS (2)
  1. NOVOLIN R [Suspect]
     Indication: DIABETES MELLITUS INADEQUATE CONTROL
     Dosage: SLIDING SCALE, SUBCUTANEOUS
     Route: 058
     Dates: start: 20080310
  2. PREDNISONE TAB [Concomitant]

REACTIONS (1)
  - DIABETES MELLITUS INADEQUATE CONTROL [None]
